FAERS Safety Report 6738488-3 (Version None)
Quarter: 2010Q2

REPORT INFORMATION
  Report Type: 
  Country: None (occurrence: None)
  Receive Date: 20100524
  Receipt Date: 20100511
  Transmission Date: 20101027
  Serious: Yes (Other)
  Sender: FDA-Public Use
  Company Number: PHHY2010CA26906

PATIENT
  Sex: Female

DRUGS (3)
  1. AREDIA [Suspect]
     Indication: BREAST CANCER METASTATIC
     Dosage: UNK
     Dates: end: 20100315
  2. ANTIBIOTICS [Concomitant]
     Dosage: UNK
     Dates: start: 20100423
  3. FRAGMIN [Concomitant]

REACTIONS (12)
  - BRONCHITIS [None]
  - CHEST PAIN [None]
  - COUGH [None]
  - EAR PAIN [None]
  - FATIGUE [None]
  - INCREASED BRONCHIAL SECRETION [None]
  - INFLUENZA [None]
  - MALAISE [None]
  - NECK PAIN [None]
  - PAIN IN EXTREMITY [None]
  - PULMONARY THROMBOSIS [None]
  - THROMBOSIS [None]
